FAERS Safety Report 5280134-2 (Version None)
Quarter: 2007Q1

REPORT INFORMATION
  Report Type: 
  Country: None (occurrence: None)
  Receive Date: 20061215
  Receipt Date: 20061005
  Transmission Date: 20070707
  Serious: Yes (Hospitalization)
  Sender: FDA-Public Use
  Company Number: HQWYE760309OCT06

PATIENT
  Age: 45 Year
  Sex: Female
  Weight: 63.56 kg

DRUGS (1)
  1. EFFEXOR XR [Suspect]
     Indication: DEPRESSION
     Dosage: 150 MG 2X PER 1 DAY, ORAL
     Route: 048
     Dates: start: 20060701, end: 20061004

REACTIONS (1)
  - HEPATIC FUNCTION ABNORMAL [None]
